FAERS Safety Report 25049483 (Version 2)
Quarter: 2025Q4

REPORT INFORMATION
  Report Type: Report from Study
  Country: EU (occurrence: EU)
  Receive Date: 20250307
  Receipt Date: 20251216
  Transmission Date: 20260117
  Serious: No
  Sender: SANDOZ
  Company Number: EU-SANDOZ-SDZ2025ES013992

PATIENT
  Age: 10 Year
  Sex: Female

DRUGS (1)
  1. OMNITROPE [Suspect]
     Active Substance: SOMATROPIN
     Indication: Product used for unknown indication
     Dosage: 1 MG
     Route: 058
     Dates: start: 20250303, end: 20250304

REACTIONS (1)
  - Drug dose omission by device [Unknown]
